FAERS Safety Report 9750117 (Version 1)
Quarter: 2013Q4

REPORT INFORMATION
  Report Type: Spontaneous
  Country: US (occurrence: US)
  Receive Date: 20131212
  Receipt Date: 20131212
  Transmission Date: 20140711
  Serious: No
  Sender: FDA-Public Use
  Company Number: US-GILEAD-US-CVT-090633

PATIENT
  Sex: Male

DRUGS (6)
  1. RANEXA [Suspect]
     Indication: ANGINA PECTORIS
     Dates: start: 200906
  2. NORVASC                            /00972401/ [Concomitant]
  3. OMEPRAZOLE [Concomitant]
  4. PLAVIX [Concomitant]
  5. HYZAAR [Concomitant]
  6. IMDUR [Concomitant]

REACTIONS (1)
  - Myalgia [Unknown]
